FAERS Safety Report 9883754 (Version 1)
Quarter: 2014Q1

REPORT INFORMATION
  Report Type: Spontaneous
  Country: US (occurrence: US)
  Receive Date: 20140210
  Receipt Date: 20140210
  Transmission Date: 20141002
  Serious: No
  Sender: FDA-Public Use
  Company Number: US-009507513-1402USA003118

PATIENT
  Age: 46 Year
  Sex: Female

DRUGS (2)
  1. SINGULAIR [Suspect]
     Indication: DERMATITIS ATOPIC
     Dosage: 10 MG, QD
     Route: 048
     Dates: start: 200804
  2. SINGULAIR [Suspect]
     Dosage: 10 MG, BID
     Route: 048
     Dates: start: 200804

REACTIONS (1)
  - Overdose [Unknown]
